FAERS Safety Report 4530514-5 (Version None)
Quarter: 2004Q4

REPORT INFORMATION
  Report Type: 
  Country: None (occurrence: None)
  Receive Date: 20041216
  Receipt Date: 20040722
  Transmission Date: 20050328
  Serious: No
  Sender: FDA-Public Use
  Company Number: A04200400672

PATIENT

DRUGS (1)
  1. COROTROPE [Suspect]
     Indication: CARDIAC FAILURE
     Dosage: NI; INTRAVENOUS NOS
     Route: 042
     Dates: start: 20040101

REACTIONS (2)
  - POST PROCEDURAL COMPLICATION [None]
  - RENAL FAILURE [None]
